FAERS Safety Report 9530986 (Version 3)
Quarter: 2013Q3

REPORT INFORMATION
  Report Type: Spontaneous
  Country: BR (occurrence: BR)
  Receive Date: 20130918
  Receipt Date: 20130927
  Transmission Date: 20140515
  Serious: Yes (Other)
  Sender: FDA-Public Use
  Company Number: BR-ASTRAZENECA-2013SE68286

PATIENT
  Sex: Female
  Weight: 57 kg

DRUGS (4)
  1. VIMOVO [Suspect]
     Indication: HERNIA
     Dosage: 500 MG + 20 MG, BID
     Route: 048
     Dates: start: 20130902, end: 20130903
  2. DIPROSPAN [Concomitant]
     Indication: HERNIA
     Dosage: ONCE
     Dates: start: 20130902, end: 20130902
  3. GLUCOSAMINE + CHONDROITIN [Concomitant]
     Indication: OSTEOARTHRITIS
     Dates: start: 2011, end: 201309
  4. GLUCOSAMINE + CHONDROITIN [Concomitant]
     Indication: OSTEOARTHRITIS
     Dates: start: 201309

REACTIONS (6)
  - Dysphagia [Unknown]
  - Hypersensitivity [Recovered/Resolved]
  - Abdominal discomfort [Not Recovered/Not Resolved]
  - Back pain [Not Recovered/Not Resolved]
  - Headache [Recovered/Resolved]
  - Off label use [Recovered/Resolved]
